FAERS Safety Report 8150970-3 (Version None)
Quarter: 2012Q1

REPORT INFORMATION
  Report Type: 
  Country: None (occurrence: None)
  Receive Date: 20120220
  Receipt Date: 20120214
  Transmission Date: 20120608
  Serious: Yes (Life-Threatening, Hospitalization, Other)
  Sender: FDA-Public Use
  Company Number: PHHY2012CA002726

PATIENT
  Sex: Female

DRUGS (11)
  1. DITROPAN [Concomitant]
     Dosage: UNK UKN, UNK
  2. IRBESARTAN [Concomitant]
     Dosage: UNK UKN, UNK
  3. CELEBREX [Concomitant]
     Dosage: UNK UKN, UNK
  4. FOSAMAX [Concomitant]
     Dosage: UNK UKN, UNK
  5. GILENYA [Suspect]
     Indication: RELAPSING-REMITTING MULTIPLE SCLEROSIS
     Dosage: 0.5 MG, DAILY
     Route: 048
     Dates: start: 20111220, end: 20120129
  6. SYNTHROID [Concomitant]
     Dosage: UNK UKN, UNK
  7. DILAUDID [Concomitant]
     Dosage: UNK UKN, UNK
  8. VITAMIN D [Concomitant]
     Dosage: UNK UKN, UNK
  9. BIOCAL D FORTE [Concomitant]
     Dosage: UNK UKN, UNK
  10. STEROIDS NOS [Concomitant]
     Dosage: UNK UKN, UNK
  11. HYDROMORPHONE HCL [Concomitant]
     Dosage: UNK UKN, UNK

REACTIONS (10)
  - CSF PROTEIN INCREASED [None]
  - PYREXIA [None]
  - CONVULSION [None]
  - CENTRAL NERVOUS SYSTEM LESION [None]
  - HEPATIC ENZYME INCREASED [None]
  - COGNITIVE DISORDER [None]
  - HEADACHE [None]
  - HEMIPARESIS [None]
  - FATIGUE [None]
  - BLOOD MAGNESIUM DECREASED [None]
